FAERS Safety Report 10186717 (Version 1)
Quarter: 2014Q2

REPORT INFORMATION
  Report Type: Report from Study
  Country: US (occurrence: US)
  Receive Date: 20140521
  Receipt Date: 20140521
  Transmission Date: 20141212
  Serious: Yes (Other)
  Sender: FDA-Public Use
  Company Number: PHEH2014US009880

PATIENT
  Sex: Male

DRUGS (2)
  1. GLEEVEC [Suspect]
     Dosage: UNK UKN, UNK
     Route: 048
  2. GLEEVEC [Suspect]
     Dosage: UKN UKN,UKN

REACTIONS (2)
  - Oesophageal neoplasm [Unknown]
  - Hepatic neoplasm [Unknown]
